FAERS Safety Report 17765512 (Version 1)
Quarter: 2020Q2

REPORT INFORMATION
  Report Type: Spontaneous
  Country: US (occurrence: US)
  Receive Date: 20200508
  Receipt Date: 20200508
  Transmission Date: 20200714
  Serious: Yes (Life-Threatening)
  Sender: FDA-Public Use
  Company Number: None

PATIENT
  Age: 60 Year
  Sex: Female
  Weight: 77.11 kg

DRUGS (1)
  1. ALPRAZOLAM 0.5MG [Suspect]
     Active Substance: ALPRAZOLAM
     Indication: ANXIETY
     Route: 048
     Dates: start: 20170802, end: 20200422

REACTIONS (5)
  - Product substitution issue [None]
  - Eye swelling [None]
  - Rash [None]
  - Anaphylactic shock [None]
  - Swelling face [None]

NARRATIVE: CASE EVENT DATE: 20200506
